FAERS Safety Report 4795340-0 (Version None)
Quarter: 2005Q3

REPORT INFORMATION
  Report Type: 
  Country: None (occurrence: None)
  Receive Date: 20050916
  Receipt Date: 20040816
  Transmission Date: 20060218
  Serious: Yes (Other)
  Sender: FDA-Public Use
  Company Number: US-JNJFOC-20040806405

PATIENT
  Age: 27 Year
  Sex: Female
  Weight: 124.7392 kg

DRUGS (3)
  1. TOPAMAX [Suspect]
     Indication: DRUG THERAPY
     Dosage: 25 MG, IN 1 DAY ORAL
     Route: 048
     Dates: start: 20040714, end: 20040731
  2. ZOLOFT [Concomitant]
  3. DESOGESTREL/ETHINYLESTRADIOL (DESOGESTREL) [Concomitant]

REACTIONS (1)
  - VISUAL DISTURBANCE [None]
